FAERS Safety Report 12679133 (Version 1)
Quarter: 2016Q3

REPORT INFORMATION
  Report Type: Report from Study
  Country: US (occurrence: US)
  Receive Date: 20160824
  Receipt Date: 20160824
  Transmission Date: 20161109
  Serious: No
  Sender: FDA-Public Use
  Company Number: US-009507513-1607USA012784

PATIENT
  Age: 93 Year
  Sex: Male

DRUGS (2)
  1. DIPHENCYPRONE [Suspect]
     Active Substance: DIPHENCYPRONE
     Indication: MALIGNANT MELANOMA
     Dosage: TWICE WEEKLY
     Route: 061
  2. KEYTRUDA [Suspect]
     Active Substance: PEMBROLIZUMAB
     Indication: MALIGNANT MELANOMA
     Dosage: 2 MG/KG EVERY 3 WEEKS
     Route: 042

REACTIONS (1)
  - Therapy non-responder [Unknown]
